FAERS Safety Report 15802941 (Version 2)
Quarter: 2019Q1

REPORT INFORMATION
  Report Type: Spontaneous
  Country: BR (occurrence: BR)
  Receive Date: 20190109
  Receipt Date: 20190122
  Transmission Date: 20190417
  Serious: Yes (Other)
  Sender: FDA-Public Use
  Company Number: BR-PFIZER INC-2018509817

PATIENT
  Age: 67 Year
  Sex: Female

DRUGS (1)
  1. SUTENT [Suspect]
     Active Substance: SUNITINIB MALATE
     Dosage: SHE TOOK SUTENT DURING 15 DAYS AND STOP DURING 15 DAYS

REACTIONS (4)
  - Malaise [Unknown]
  - Central nervous system lesion [Unknown]
  - Thrombosis [Not Recovered/Not Resolved]
  - Renal disorder [Unknown]
